FAERS Safety Report 24996552 (Version 1)
Quarter: 2025Q1

REPORT INFORMATION
  Report Type: Spontaneous
  Country: US (occurrence: US)
  Receive Date: 20250221
  Receipt Date: 20250221
  Transmission Date: 20250408
  Serious: No
  Sender: BAUSCH AND LOMB
  Company Number: US-BAUSCHBL-2025BNL002616

PATIENT
  Sex: Female

DRUGS (1)
  1. XIIDRA [Suspect]
     Active Substance: LIFITEGRAST
     Indication: Dry eye
     Dosage: 1 DROP IN EACH EYE TWICE A DAY
     Route: 047

REACTIONS (4)
  - Swelling of eyelid [Recovered/Resolved]
  - Skin discolouration [Recovered/Resolved]
  - Eye disorder [Recovered/Resolved]
  - Ocular hyperaemia [Recovered/Resolved]
